FAERS Safety Report 6885767 (Version 2)
Quarter: 2014Q3

REPORT INFORMATION
  Report Type: Spontaneous
  Country: IT (occurrence: None)
  Receive Date: 20090113
  Receipt Date: 20140822
  Transmission Date: 20150326
  Serious: Yes (Life-Threatening)
  Sender: FDA-Public Use
  Company Number: 134382

PATIENT
  Age: 47 Year
  Sex: Male

DRUGS (1)
  1. CYTARABINE. [Suspect]
     Active Substance: CYTARABINE

REACTIONS (1)
  - Intestinal perforation [None]
